FAERS Safety Report 22229633 (Version 1)
Quarter: 2023Q2

REPORT INFORMATION
  Report Type: Spontaneous
  Country: US (occurrence: US)
  Receive Date: 20230419
  Receipt Date: 20230419
  Transmission Date: 20230722
  Serious: No
  Sender: FDA-Public Use
  Company Number: US-ALLERGAN-2239922US

PATIENT
  Sex: Female
  Weight: 54.431 kg

DRUGS (2)
  1. RESTASIS [Suspect]
     Active Substance: CYCLOSPORINE
     Indication: Dry eye
     Dosage: UNK
  2. RESTASIS [Suspect]
     Active Substance: CYCLOSPORINE
     Dosage: 4 DF, QD
     Route: 047

REACTIONS (5)
  - Product use issue [Unknown]
  - Eye pain [Unknown]
  - Superficial injury of eye [Unknown]
  - Product dispensing issue [Unknown]
  - Product delivery mechanism issue [Unknown]
